FAERS Safety Report 19681972 (Version 2)
Quarter: 2021Q3

REPORT INFORMATION
  Report Type: Report from Study
  Country: US (occurrence: US)
  Receive Date: 20210810
  Receipt Date: 20210823
  Transmission Date: 20211014
  Serious: Yes (Hospitalization)
  Sender: FDA-Public Use
  Company Number: US-JNJFOC-20210812269

PATIENT
  Sex: Male

DRUGS (3)
  1. SELEXIPAG [Suspect]
     Active Substance: SELEXIPAG
     Route: 048
  2. SELEXIPAG [Suspect]
     Active Substance: SELEXIPAG
     Indication: PULMONARY ARTERIAL HYPERTENSION
     Route: 048
  3. SILDENAFIL CITRATE. [Concomitant]
     Active Substance: SILDENAFIL CITRATE

REACTIONS (3)
  - Blood pressure fluctuation [Unknown]
  - Pulmonary hypertension [Unknown]
  - Fluid retention [Unknown]
